FAERS Safety Report 9530969 (Version 1)
Quarter: 2013Q2

REPORT INFORMATION
  Report Type: Spontaneous
  Country: US (occurrence: None)
  Receive Date: 20130402
  Receipt Date: 20130402
  Transmission Date: 20140414
  Serious: No
  Sender: FDA-Public Use
  Company Number: RB-46539-2012

PATIENT
  Sex: 0

DRUGS (5)
  1. SUBOXONE 8 MG [Suspect]
     Indication: DRUG DEPENDENCE
     Route: 060
     Dates: start: 201206, end: 201210
  2. BUPRENORPHINE [Suspect]
     Indication: DRUG DEPENDENCE
     Route: 060
     Dates: start: 201210
  3. PERCOCET [Suspect]
     Indication: DRUG DEPENDENCE
     Route: 048
     Dates: start: 20130109, end: 201301
  4. XANAX (NOT SPECIFIED) [Suspect]
     Indication: ANXIETY
     Route: 048
     Dates: end: 20130111
  5. KLONOPIN [Concomitant]

REACTIONS (7)
  - Substance abuse [None]
  - Wrong technique in drug usage process [None]
  - Underdose [None]
  - Maternal exposure during pregnancy [None]
  - Pelvic pain [None]
  - Drug withdrawal syndrome [None]
  - Tremor [None]
